FAERS Safety Report 25766058 (Version 4)
Quarter: 2025Q4

REPORT INFORMATION
  Report Type: Spontaneous
  Country: US (occurrence: US)
  Receive Date: 20250905
  Receipt Date: 20251229
  Transmission Date: 20260118
  Serious: No
  Sender: BIOVITRUM
  Company Number: US-BIOVITRUM-2025-US-011946

PATIENT
  Age: 62 Year
  Sex: Female

DRUGS (2)
  1. KINERET [Suspect]
     Active Substance: ANAKINRA
     Indication: Gout
     Dosage: ONCE A DAY?29-AUG-2025, 30-AUG-2025 AND 31-AUG-2025, AS A 3-DAY COURSE
     Route: 058
     Dates: start: 20250829, end: 20250831
  2. PREDNISONE [Concomitant]
     Active Substance: PREDNISONE
     Indication: Product used for unknown indication
     Dosage: DAILY

REACTIONS (6)
  - Intentional product misuse [Recovered/Resolved]
  - Nervousness [Unknown]
  - Liquid product physical issue [Unknown]
  - Injection site pain [Recovered/Resolved]
  - Product storage error [Unknown]
  - Injection site urticaria [Unknown]

NARRATIVE: CASE EVENT DATE: 20250829
